FAERS Safety Report 10147305 (Version 1)
Quarter: 2014Q2

REPORT INFORMATION
  Report Type: Spontaneous
  Country: US (occurrence: US)
  Receive Date: 20140501
  Receipt Date: 20140501
  Transmission Date: 20141212
  Serious: No
  Sender: FDA-Public Use
  Company Number: US-SA-2014SA009851

PATIENT
  Age: 89 Year
  Sex: Female
  Weight: 82 kg

DRUGS (3)
  1. HECTOROL [Suspect]
     Indication: PRODUCT USED FOR UNKNOWN INDICATION
     Dosage: FREQUENCY: QTX
     Route: 040
     Dates: start: 20131220, end: 20131222
  2. HECTOROL [Suspect]
     Indication: PRODUCT USED FOR UNKNOWN INDICATION
     Dosage: FREQUENCY: QTX
     Route: 040
     Dates: start: 20131220, end: 20131222
  3. EPOGEN [Concomitant]
     Indication: ANAEMIA
     Dosage: FREQUENCY WAS REPORTED AS QTX DOSE:3000 UNIT(S)
     Route: 040
     Dates: start: 20130612

REACTIONS (6)
  - Hyperhidrosis [Recovered/Resolved]
  - Pruritus [Unknown]
  - Malaise [Recovered/Resolved]
  - Nausea [Recovered/Resolved]
  - Vomiting [Recovered/Resolved]
  - Dizziness [Recovered/Resolved]
